FAERS Safety Report 12738210 (Version 2)
Quarter: 2018Q2

REPORT INFORMATION
  Report Type: Spontaneous
  Country: US (occurrence: US)
  Receive Date: 20160912
  Receipt Date: 20180515
  Transmission Date: 20180711
  Serious: No
  Sender: FDA-Public Use
  Company Number: US-SA-2016SA125329

PATIENT
  Sex: Female

DRUGS (3)
  1. TOUJEO [Suspect]
     Active Substance: INSULIN GLARGINE
     Route: 065
  2. SOLOSTAR [Concomitant]
     Active Substance: DEVICE
  3. GLIPIZIDE. [Concomitant]
     Active Substance: GLIPIZIDE
     Route: 065

REACTIONS (4)
  - Cardiac disorder [Unknown]
  - Blood glucose increased [Unknown]
  - Sleep apnoea syndrome [Unknown]
  - Anxiety [Unknown]
